FAERS Safety Report 7299247-9 (Version None)
Quarter: 2011Q1

REPORT INFORMATION
  Report Type: 
  Country: None (occurrence: None)
  Receive Date: 20110217
  Receipt Date: 20110209
  Transmission Date: 20110831
  Serious: Yes (Life-Threatening, Hospitalization)
  Sender: FDA-Public Use
  Company Number: FR-MERCK-1102FRA00062

PATIENT
  Age: 55 Year
  Sex: Male

DRUGS (13)
  1. JANUVIA [Suspect]
     Indication: TYPE 2 DIABETES MELLITUS
     Route: 048
     Dates: start: 20101222, end: 20110102
  2. OFLOXACIN [Suspect]
     Indication: INFECTION
     Route: 042
     Dates: start: 20101229, end: 20101231
  3. HYDROXYZINE HYDROCHLORIDE [Suspect]
     Route: 048
     Dates: end: 20110101
  4. INSULIN DETEMIR [Concomitant]
     Route: 058
  5. ENOXAPARIN SODIUM [Suspect]
     Indication: THROMBOSIS PROPHYLAXIS
     Route: 058
     Dates: start: 20100901, end: 20110131
  6. REPAGLINIDE [Suspect]
     Indication: TYPE 2 DIABETES MELLITUS
     Route: 048
     Dates: end: 20110102
  7. ALPRAZOLAM [Suspect]
     Route: 048
     Dates: start: 20101222, end: 20110105
  8. ATORVASTATIN CALCIUM [Concomitant]
     Route: 048
  9. FUROSEMIDE [Concomitant]
     Route: 048
  10. AMOXICILLIN AND CLAVULANATE POTASSIUM [Suspect]
     Indication: INFECTION
     Route: 042
     Dates: start: 20101229, end: 20101231
  11. VALPROMIDE [Suspect]
     Route: 048
     Dates: start: 20101222, end: 20110106
  12. PANTOPRAZOLE SODIUM [Concomitant]
     Route: 048
  13. ALFUZOSIN HYDROCHLORIDE [Suspect]
     Route: 048
     Dates: start: 20101222, end: 20110104

REACTIONS (1)
  - THROMBOCYTOPENIA [None]
